FAERS Safety Report 7753186-5 (Version None)
Quarter: 2011Q3

REPORT INFORMATION
  Report Type: 
  Country: None (occurrence: None)
  Receive Date: 20110915
  Receipt Date: 20110905
  Transmission Date: 20111222
  Serious: Yes (Hospitalization)
  Sender: FDA-Public Use
  Company Number: PHHY2011JP58662

PATIENT
  Sex: Female
  Weight: 50 kg

DRUGS (2)
  1. VOLTAREN [Suspect]
     Indication: PYREXIA
     Dosage: UNK UKN, UNK
     Route: 054
     Dates: start: 20101121, end: 20101125
  2. ACETAMINOPHEN [Suspect]
     Indication: PYREXIA
     Dosage: UNK UKN, UNK
     Route: 048
     Dates: start: 20101124, end: 20101125

REACTIONS (15)
  - ASPARTATE AMINOTRANSFERASE INCREASED [None]
  - BLOOD LACTATE DEHYDROGENASE INCREASED [None]
  - MONOCYTE COUNT DECREASED [None]
  - MONOCYTE COUNT INCREASED [None]
  - RASH [None]
  - ALANINE AMINOTRANSFERASE INCREASED [None]
  - WHITE BLOOD CELL COUNT DECREASED [None]
  - NEUTROPHIL COUNT DECREASED [None]
  - BLOOD ALKALINE PHOSPHATASE INCREASED [None]
  - PLATELET COUNT DECREASED [None]
  - LIVER DISORDER [None]
  - EOSINOPHIL COUNT DECREASED [None]
  - STEVENS-JOHNSON SYNDROME [None]
  - STOMATITIS [None]
  - LYMPHOCYTE COUNT INCREASED [None]
